FAERS Safety Report 9652839 (Version 1)
Quarter: 2013Q4

REPORT INFORMATION
  Report Type: Report from Study
  Country: US (occurrence: US)
  Receive Date: 20131029
  Receipt Date: 20131029
  Transmission Date: 20140711
  Serious: No
  Sender: FDA-Public Use
  Company Number: US-ALEXION-A201302779

PATIENT
  Sex: Male
  Weight: 99.77 kg

DRUGS (1)
  1. SOLIRIS [Suspect]
     Indication: PAROXYSMAL NOCTURNAL HAEMOGLOBINURIA
     Dosage: 1200 MG, Q 3WEEKS
     Route: 042
     Dates: start: 2006

REACTIONS (1)
  - Upper respiratory tract infection [Recovered/Resolved]
